FAERS Safety Report 6669226-0 (Version None)
Quarter: 2010Q2

REPORT INFORMATION
  Report Type: 
  Country: None (occurrence: None)
  Receive Date: 20100406
  Receipt Date: 20100326
  Transmission Date: 20101027
  Serious: Yes (Hospitalization)
  Sender: FDA-Public Use
  Company Number: US-JNJFOC-20100308817

PATIENT
  Age: 62 Year
  Sex: Male
  Weight: 96.16 kg

DRUGS (10)
  1. IMODIUM MULTI-SYMPTOM RELIEF [Suspect]
     Indication: DIARRHOEA
  2. IMODIUM MULTI-SYMPTOM RELIEF [Suspect]
     Dosage: AS DIRECTED
  3. METFORMIN [Concomitant]
     Indication: DIABETES MELLITUS
  4. ACTOS [Concomitant]
     Indication: DIABETES MELLITUS
  5. GLIPIZIDE [Concomitant]
     Indication: DIABETES MELLITUS
  6. DILTIAZEM HCL [Concomitant]
     Indication: HYPERTENSION
  7. WARFARIN SODIUM [Concomitant]
     Indication: ANTICOAGULANT THERAPY
  8. AMLODIPINE [Concomitant]
     Indication: BLOOD PRESSURE
  9. GABAPENTIN [Concomitant]
     Indication: NEUROPATHY PERIPHERAL
  10. SIMVASTATIN [Concomitant]
     Indication: BLOOD CHOLESTEROL

REACTIONS (2)
  - ABDOMINAL PAIN UPPER [None]
  - CONSTIPATION [None]
